FAERS Safety Report 7933106-0 (Version None)
Quarter: 2011Q4

REPORT INFORMATION
  Report Type: 
  Country: None (occurrence: None)
  Receive Date: 20111121
  Receipt Date: 20111121
  Transmission Date: 20120403
  Serious: Yes (Other)
  Sender: FDA-Public Use
  Company Number: None

PATIENT
  Age: 47 Year
  Sex: Male

DRUGS (5)
  1. ASPIRIN [Concomitant]
  2. ACYCLOVIR [Concomitant]
  3. REVLIMID [Suspect]
     Indication: MULTIPLE MYELOMA
     Dosage: REVLIMID 15 MG DAILY X14D/21D ORALLY
     Route: 048
     Dates: start: 20110901
  4. SIMVASTATIN [Concomitant]
  5. DEXAMETHASONE [Concomitant]

REACTIONS (3)
  - URTICARIA [None]
  - RASH [None]
  - NEUROPATHY PERIPHERAL [None]
